FAERS Safety Report 21306044 (Version 4)
Quarter: 2023Q1

REPORT INFORMATION
  Report Type: Report from Study
  Country: US (occurrence: US)
  Receive Date: 20220908
  Receipt Date: 20230324
  Transmission Date: 20230418
  Serious: Yes (Death, Hospitalization, Other)
  Sender: FDA-Public Use
  Company Number: US-ACADIA PHARMACEUTICALS INC.-ACA-2022-PIM-002885

PATIENT
  Sex: Male

DRUGS (14)
  1. NUPLAZID [Suspect]
     Active Substance: PIMAVANSERIN TARTRATE
     Indication: Parkinson^s disease psychosis
     Dosage: 34 MILLIGRAM, QD
     Route: 048
     Dates: start: 20220822, end: 202208
  2. NUPLAZID [Suspect]
     Active Substance: PIMAVANSERIN TARTRATE
     Indication: Hallucination
     Dosage: 34 MILLIGRAM EVERY OTHER DAY
     Route: 048
  3. NUPLAZID [Suspect]
     Active Substance: PIMAVANSERIN TARTRATE
     Indication: Delusion
     Dosage: 34 MILLIGRAM, QD
     Route: 048
  4. NUPLAZID [Suspect]
     Active Substance: PIMAVANSERIN TARTRATE
     Indication: Dementia
  5. CARBIDOPA LEVODOPA [Concomitant]
     Active Substance: CARBIDOPA\LEVODOPA
  6. REQUIP [Concomitant]
     Active Substance: ROPINIROLE HYDROCHLORIDE
  7. CELECOXIB [Concomitant]
     Active Substance: CELECOXIB
  8. RIVASTIGMINE [Concomitant]
     Active Substance: RIVASTIGMINE
     Indication: Memory impairment
  9. VITAMIN D NOS [Concomitant]
     Active Substance: VITAMIN D NOS
  10. MIDODRINE [Concomitant]
     Active Substance: MIDODRINE
     Indication: Hypotension
  11. ASPIRIN [Concomitant]
     Active Substance: ASPIRIN
  12. CITALOPRAM [Concomitant]
     Active Substance: CITALOPRAM HYDROBROMIDE
  13. ROPINIROLE [Concomitant]
     Active Substance: ROPINIROLE
  14. VITAMINS NOS [Concomitant]
     Active Substance: VITAMINS

REACTIONS (10)
  - Death [Fatal]
  - Blood glucose decreased [Not Recovered/Not Resolved]
  - Hypertension [Recovered/Resolved]
  - Muscular weakness [Unknown]
  - Transient ischaemic attack [Unknown]
  - Urinary tract infection [Unknown]
  - Dysstasia [Unknown]
  - Inappropriate schedule of product administration [Unknown]
  - Blood pressure increased [Unknown]
  - Somnolence [Not Recovered/Not Resolved]
